FAERS Safety Report 9953089 (Version 1)
Quarter: 2014Q1

REPORT INFORMATION
  Report Type: Report from Study
  Country: US (occurrence: US)
  Receive Date: 20140304
  Receipt Date: 20140304
  Transmission Date: 20141002
  Serious: No
  Sender: FDA-Public Use
  Company Number: US-ABBVIE-13P-163-1071378-00

PATIENT
  Age: 53 Year
  Sex: Female

DRUGS (11)
  1. HUMIRA [Suspect]
     Indication: RHEUMATOID ARTHRITIS
     Dosage: EVERY OTHER FRIDAY
     Dates: start: 20121221
  2. ARAVA [Concomitant]
     Indication: ARTHRITIS
  3. NAPROXEN [Concomitant]
     Indication: INFLAMMATION
     Dosage: 500MG PER DAY
  4. CELEXA [Concomitant]
     Indication: DEPRESSION
     Dosage: 20MG DAILY
  5. PLAQUENIL [Concomitant]
     Indication: SYSTEMIC LUPUS ERYTHEMATOSUS
  6. PREMPRO [Concomitant]
     Indication: HORMONE REPLACEMENT THERAPY
     Dosage: 0.625/2.5MG PER DAY
  7. LEVOTHYROXINE [Concomitant]
     Indication: HYPOTHYROIDISM
     Dosage: 50MCG PER DAY
  8. AMBIEN [Concomitant]
     Indication: INSOMNIA
     Dosage: AT NIGHT
  9. ATIVAN [Concomitant]
     Indication: ANXIETY
  10. VITAMIN D [Concomitant]
     Indication: PRODUCT USED FOR UNKNOWN INDICATION
     Dosage: 1.25MG/B2 50,000 IU
  11. LORTAB [Concomitant]
     Indication: PAIN

REACTIONS (1)
  - Injection site reaction [Recovered/Resolved]
